FAERS Safety Report 20802248 (Version 1)
Quarter: 2022Q2

REPORT INFORMATION
  Report Type: Spontaneous
  Country: JP (occurrence: JP)
  Receive Date: 20220509
  Receipt Date: 20220509
  Transmission Date: 20220720
  Serious: Yes (Other)
  Sender: FDA-Public Use
  Company Number: JP-TAKEDA-2022TJP043855

PATIENT
  Age: 6 Decade
  Sex: Male

DRUGS (1)
  1. CABOMETYX [Suspect]
     Active Substance: CABOZANTINIB S-MALATE
     Indication: Renal cancer metastatic
     Dosage: 60 MG
     Route: 048

REACTIONS (5)
  - Chronic kidney disease [Unknown]
  - Hypothyroidism [Unknown]
  - Malaise [Recovering/Resolving]
  - Blood magnesium decreased [Unknown]
  - Blood calcium decreased [Unknown]
